FAERS Safety Report 11637903 (Version 2)
Quarter: 2015Q4

REPORT INFORMATION
  Report Type: Spontaneous
  Country: US (occurrence: US)
  Receive Date: 20151016
  Receipt Date: 20151203
  Transmission Date: 20160304
  Serious: No
  Sender: FDA-Public Use
  Company Number: US-BAYER-2015-441733

PATIENT
  Age: 71 Year
  Sex: Female
  Weight: 79.36 kg

DRUGS (4)
  1. OXYTROL FOR WOMEN [Suspect]
     Active Substance: OXYBUTYNIN
     Indication: HYPERTONIC BLADDER
     Dosage: 1 DF, EVERY 4 DAYS
     Route: 061
     Dates: start: 201506, end: 201509
  2. OXYTROL FOR WOMEN [Suspect]
     Active Substance: OXYBUTYNIN
     Indication: HYPERTONIC BLADDER
     Dosage: 1 DF,  EVERY 4 DAYS
     Dates: start: 201510
  3. OXYTROL FOR WOMEN [Suspect]
     Active Substance: OXYBUTYNIN
     Indication: HYPERTONIC BLADDER
     Dosage: 1 DF, EVERY 4 DAYS
     Dates: start: 20151002, end: 20151006
  4. BENICAR HCT [Concomitant]
     Active Substance: HYDROCHLOROTHIAZIDE\OLMESARTAN MEDOXOMIL

REACTIONS (5)
  - Drug ineffective [None]
  - Application site erythema [Not Recovered/Not Resolved]
  - Drug prescribing error [None]
  - Application site pruritus [Not Recovered/Not Resolved]
  - Product adhesion issue [None]

NARRATIVE: CASE EVENT DATE: 201507
